FAERS Safety Report 22130651 (Version 3)
Quarter: 2023Q4

REPORT INFORMATION
  Report Type: Report from Study
  Country: BR (occurrence: BR)
  Receive Date: 20230323
  Receipt Date: 20231025
  Transmission Date: 20240109
  Serious: Yes (Other)
  Sender: FDA-Public Use
  Company Number: BR-JNJFOC-20230341016

PATIENT
  Age: 51 Year
  Sex: Female
  Weight: 75 kg

DRUGS (5)
  1. REMICADE [Suspect]
     Active Substance: INFLIXIMAB
     Indication: Colitis ulcerative
     Route: 041
     Dates: start: 20210315, end: 202209
  2. REMICADE [Suspect]
     Active Substance: INFLIXIMAB
     Indication: Colitis
  3. INFLIXIMAB [Suspect]
     Active Substance: INFLIXIMAB
     Indication: Colitis ulcerative
     Route: 065
     Dates: end: 202211
  4. INFLIXIMAB [Suspect]
     Active Substance: INFLIXIMAB
     Indication: Colitis
  5. AZATHIOPRINE [Suspect]
     Active Substance: AZATHIOPRINE
     Indication: Product used for unknown indication
     Route: 065

REACTIONS (3)
  - Systemic lupus erythematosus [Unknown]
  - Haemolytic anaemia [Unknown]
  - Toxicity to various agents [Unknown]
